FAERS Safety Report 19729125 (Version 1)
Quarter: 2021Q3

REPORT INFORMATION
  Report Type: Spontaneous
  Country: IT (occurrence: IT)
  Receive Date: 20210821
  Receipt Date: 20210821
  Transmission Date: 20211014
  Serious: Yes (Hospitalization, Other)
  Sender: FDA-Public Use
  Company Number: IT-AUROBINDO-AUR-APL-2021-035008

PATIENT
  Age: 17 Year
  Sex: Female

DRUGS (4)
  1. CARBOLITHIUM [Suspect]
     Active Substance: LITHIUM CARBONATE
     Indication: CONVERSION DISORDER
     Dosage: 8 DOSAGE FORM (TOTAL)
     Route: 048
     Dates: start: 20210704, end: 20210704
  2. CHLORPROMAZINE HYDROCHLORIDE. [Suspect]
     Active Substance: CHLORPROMAZINE HYDROCHLORIDE
     Indication: CONVERSION DISORDER
     Dosage: 100 MILLIGRAM (TOTAL)
     Route: 048
     Dates: start: 20210704, end: 20210704
  3. CARBOLITHIUM [Suspect]
     Active Substance: LITHIUM CARBONATE
     Indication: CONVERSION DISORDER
     Dosage: 9 DOSAGE FORM (TOTAL)
     Route: 048
     Dates: start: 20210704, end: 20210704
  4. OLANZAPINE. [Suspect]
     Active Substance: OLANZAPINE
     Indication: CONVERSION DISORDER
     Dosage: 5 DOSAGE FORM (TOTAL)
     Route: 048
     Dates: start: 20210704, end: 20210704

REACTIONS (4)
  - Mutism [Recovering/Resolving]
  - Hypokinesia [Recovering/Resolving]
  - Drug abuse [Recovering/Resolving]
  - Bradyphrenia [Recovering/Resolving]

NARRATIVE: CASE EVENT DATE: 20210704
